FAERS Safety Report 11634949 (Version 1)
Quarter: 2015Q4

REPORT INFORMATION
  Report Type: Spontaneous
  Country: GB (occurrence: GB)
  Receive Date: 20151015
  Receipt Date: 20151015
  Transmission Date: 20160304
  Serious: Yes (Hospitalization, Other)
  Sender: FDA-Public Use
  Company Number: GB-BRISTOL-MYERS SQUIBB COMPANY-BMS-2015-068015

PATIENT
  Sex: Male

DRUGS (2)
  1. ARIPIPRAZOLE. [Suspect]
     Active Substance: ARIPIPRAZOLE
     Indication: PRODUCT USED FOR UNKNOWN INDICATION
     Dosage: UNK
     Route: 065
     Dates: start: 2015
  2. SEROXAT [Suspect]
     Active Substance: PAROXETINE HYDROCHLORIDE
     Indication: PRODUCT USED FOR UNKNOWN INDICATION
     Dosage: UNK
     Route: 065
     Dates: start: 2015

REACTIONS (7)
  - Confusional state [Not Recovered/Not Resolved]
  - Abnormal behaviour [Not Recovered/Not Resolved]
  - Neuroleptic malignant syndrome [Unknown]
  - Musculoskeletal stiffness [Not Recovered/Not Resolved]
  - Malaise [Not Recovered/Not Resolved]
  - Agitation [Not Recovered/Not Resolved]
  - Ill-defined disorder [Not Recovered/Not Resolved]

NARRATIVE: CASE EVENT DATE: 201509
